FAERS Safety Report 17615211 (Version 1)
Quarter: 2020Q2

REPORT INFORMATION
  Report Type: Spontaneous
  Country: US (occurrence: US)
  Receive Date: 20200402
  Receipt Date: 20200402
  Transmission Date: 20200713
  Serious: No
  Sender: FDA-Public Use
  Company Number: US-PFIZER INC-2020135507

PATIENT
  Age: 62 Year
  Sex: Female
  Weight: 54.43 kg

DRUGS (2)
  1. CELECOXIB. [Suspect]
     Active Substance: CELECOXIB
     Indication: INFLAMMATION
  2. CELECOXIB. [Suspect]
     Active Substance: CELECOXIB
     Indication: SPINAL COMPRESSION FRACTURE
     Dosage: UNK

REACTIONS (2)
  - Drug ineffective for unapproved indication [Unknown]
  - Off label use [Unknown]
